FAERS Safety Report 24208832 (Version 2)
Quarter: 2024Q3

REPORT INFORMATION
  Report Type: Spontaneous
  Country: JP (occurrence: JP)
  Receive Date: 20240814
  Receipt Date: 20240903
  Transmission Date: 20241016
  Serious: Yes (Hospitalization)
  Sender: INSMED
  Company Number: JP-INSMED, INC.-2024-03168-JP

PATIENT
  Age: 81 Year

DRUGS (1)
  1. ARIKAYCE [Suspect]
     Active Substance: AMIKACIN
     Indication: Mycobacterium avium complex infection
     Dosage: 590 MILLIGRAM, QD
     Route: 055

REACTIONS (2)
  - Disease progression [Unknown]
  - Therapy interrupted [Unknown]
